FAERS Safety Report 17691668 (Version 10)
Quarter: 2021Q3

REPORT INFORMATION
  Report Type: Report from Study
  Country: GB (occurrence: GB)
  Receive Date: 20200422
  Receipt Date: 20210929
  Transmission Date: 20211014
  Serious: Yes (Life-Threatening, Hospitalization)
  Sender: FDA-Public Use
  Company Number: GB-ROCHE-2586307

PATIENT
  Age: 55 Year
  Sex: Male
  Weight: 100.3 kg

DRUGS (29)
  1. HUMULIN M3 [Concomitant]
     Active Substance: INSULIN HUMAN
     Indication: TYPE 2 DIABETES MELLITUS
     Dates: start: 20111005
  2. GLOFITAMAB. [Suspect]
     Active Substance: GLOFITAMAB
     Indication: B-CELL LYMPHOMA
     Dosage: THIS WAS THE MOST RECENT DOSE (1.85 MG IN 1.85 ML)  OF RO7082059 GIVEN AT 09:20 HOURS AND ENDED AT 0
     Route: 042
     Dates: start: 20200415
  3. CHLORPHENAMINE [Concomitant]
     Active Substance: CHLORPHENIRAMINE MALEATE
     Dosage: PRE MED PRIOR TO EXTRA DOSE OF OBINUTUZUMAB
     Route: 042
     Dates: start: 20200428, end: 20200428
  4. ALLOPURINOL. [Concomitant]
     Active Substance: ALLOPURINOL
     Indication: PROPHYLAXIS
     Dates: start: 20200401, end: 20200616
  5. TINZAPARIN [Concomitant]
     Active Substance: TINZAPARIN
     Indication: PULMONARY EMBOLISM
     Dates: start: 2019
  6. DEXAMETHASONE. [Concomitant]
     Active Substance: DEXAMETHASONE
     Indication: CYTOKINE RELEASE SYNDROME
     Route: 042
     Dates: start: 20200407, end: 20200407
  7. DEXAMETHASONE. [Concomitant]
     Active Substance: DEXAMETHASONE
     Route: 042
     Dates: start: 20200416, end: 20200417
  8. PARACETAMOL [Concomitant]
     Active Substance: ACETAMINOPHEN
     Dosage: PRE MED PRIOR TO EXTRA DOSE OF OBINUTUZUMAB
     Route: 048
     Dates: start: 20200428, end: 20200428
  9. LANSOPRAZOLE. [Concomitant]
     Active Substance: LANSOPRAZOLE
     Dates: start: 20200416
  10. ATORVASTATIN [Concomitant]
     Active Substance: ATORVASTATIN
     Indication: ISCHAEMIC HEART DISEASE PROPHYLAXIS
     Dates: start: 20200418
  11. OBINUTUZUMAB. [Suspect]
     Active Substance: OBINUTUZUMAB
     Indication: B-CELL LYMPHOMA
     Dosage: THIS WAS THE MOST RECENT DOSE (1000 MG IN 275 ML) OF OBINUTUZUMAB AT 12:50 HOURS AND ENDED AT 07:30
     Route: 042
     Dates: start: 20200407
  12. TOCILIZUMAB. [Suspect]
     Active Substance: TOCILIZUMAB
     Indication: CYTOKINE RELEASE SYNDROME
     Dosage: ON 15/APR/2020 AT 11:08 PM MOST RECENT DOSE WAS ADMINISTERED. ?TOTAL VOLUME PRIOR TO SERIOUS ADVERSE
     Route: 042
     Dates: start: 20200415
  13. METHYLPREDNISOLONE. [Concomitant]
     Active Substance: METHYLPREDNISOLONE
     Route: 042
     Dates: start: 20200415, end: 20200415
  14. PARACETAMOL [Concomitant]
     Active Substance: ACETAMINOPHEN
     Route: 048
     Dates: start: 20200407, end: 20200407
  15. METFORMIN [Concomitant]
     Active Substance: METFORMIN HYDROCHLORIDE
     Indication: TYPE 2 DIABETES MELLITUS
     Dates: start: 20141104
  16. PREDNISOLONE. [Concomitant]
     Active Substance: PREDNISOLONE
     Dates: start: 20200317
  17. TAZOCIN [Concomitant]
     Active Substance: PIPERACILLIN SODIUM\TAZOBACTAM SODIUM
     Indication: PYREXIA
     Route: 042
     Dates: start: 20200416, end: 20200417
  18. METHYLPREDNISOLONE. [Concomitant]
     Active Substance: METHYLPREDNISOLONE
     Route: 042
     Dates: start: 20200512, end: 20200512
  19. PARACETAMOL [Concomitant]
     Active Substance: ACETAMINOPHEN
     Route: 048
     Dates: start: 20200429, end: 20200429
  20. PARACETAMOL [Concomitant]
     Active Substance: ACETAMINOPHEN
     Route: 048
     Dates: start: 20200415, end: 20200415
  21. CHLORPHENAMINE [Concomitant]
     Active Substance: CHLORPHENIRAMINE MALEATE
     Route: 042
     Dates: start: 20200415, end: 20200415
  22. ACTRAPID [Concomitant]
     Active Substance: INSULIN HUMAN
     Indication: DIABETES MELLITUS
     Dates: start: 20200416, end: 20200417
  23. PARACETAMOL [Concomitant]
     Active Substance: ACETAMINOPHEN
     Route: 048
     Dates: start: 20200512, end: 20200512
  24. ATORVASTATIN [Concomitant]
     Active Substance: ATORVASTATIN
     Dates: start: 20200418
  25. METHYLPREDNISOLONE. [Concomitant]
     Active Substance: METHYLPREDNISOLONE
     Route: 042
     Dates: start: 20200429, end: 20200429
  26. DEXAMETHASONE. [Concomitant]
     Active Substance: DEXAMETHASONE
     Dosage: PRE MED PRIOR TO EXTRA DOSE OF OBINUTUZUMAB
     Route: 042
     Dates: start: 20200428, end: 20200428
  27. CHLORPHENAMINE [Concomitant]
     Active Substance: CHLORPHENIRAMINE MALEATE
     Route: 042
     Dates: start: 20200407, end: 20200407
  28. CHLORPHENAMINE [Concomitant]
     Active Substance: CHLORPHENIRAMINE MALEATE
     Route: 042
     Dates: start: 20200429, end: 20200429
  29. CHLORPHENAMINE [Concomitant]
     Active Substance: CHLORPHENIRAMINE MALEATE
     Route: 042
     Dates: start: 20200512, end: 20200512

REACTIONS (2)
  - Cytokine release syndrome [Recovered/Resolved]
  - Tumour lysis syndrome [Recovered/Resolved]

NARRATIVE: CASE EVENT DATE: 20200415
